FAERS Safety Report 14487886 (Version 1)
Quarter: 2018Q1

REPORT INFORMATION
  Report Type: Spontaneous
  Country: JP (occurrence: JP)
  Receive Date: 20180205
  Receipt Date: 20180205
  Transmission Date: 20180509
  Serious: Yes (Other)
  Sender: FDA-Public Use
  Company Number: JP-MYLANLABS-2018M1006794

PATIENT
  Age: 2 Decade
  Sex: Female

DRUGS (2)
  1. EPINEPHRINE. [Suspect]
     Active Substance: EPINEPHRINE
     Indication: RESUSCITATION
     Dosage: 1 ?G/KG, 1 MINUTE
  2. SODIUM HYDROGEN CARBONATE [Suspect]
     Active Substance: SODIUM BICARBONATE
     Indication: ACIDOSIS
     Dosage: 250 ML, BOLUS

REACTIONS (1)
  - Drug ineffective [Unknown]
